FAERS Safety Report 21248565 (Version 5)
Quarter: 2023Q1

REPORT INFORMATION
  Report Type: Report from Study
  Country: TR (occurrence: TR)
  Receive Date: 20220824
  Receipt Date: 20230216
  Transmission Date: 20230418
  Serious: Yes (Other)
  Sender: FDA-Public Use
  Company Number: TR-PFIZER INC-202200287319

PATIENT
  Age: 65 Year
  Sex: Female

DRUGS (3)
  1. DACOMITINIB [Suspect]
     Active Substance: DACOMITINIB
     Indication: Non-small cell lung cancer metastatic
     Dosage: 15 MG
     Dates: start: 20190926
  2. DACOMITINIB [Suspect]
     Active Substance: DACOMITINIB
     Dosage: 30 MG, 1X/DAY
     Route: 048
     Dates: start: 20201124, end: 20211124
  3. DACOMITINIB [Suspect]
     Active Substance: DACOMITINIB
     Dosage: 15 MG, 1X/DAY
     Route: 048
     Dates: start: 20220211, end: 202209

REACTIONS (9)
  - Xerophthalmia [Recovered/Resolved]
  - Skin discolouration [Recovered/Resolved]
  - Diarrhoea [Recovered/Resolved]
  - Rash [Recovered/Resolved]
  - Nail discolouration [Recovered/Resolved]
  - Intracranial mass [Recovered/Resolved]
  - Memory impairment [Not Recovered/Not Resolved]
  - Restlessness [Recovered/Resolved]
  - Post procedural complication [Recovered/Resolved]
